FAERS Safety Report 7728978-9 (Version None)
Quarter: 2011Q3

REPORT INFORMATION
  Report Type: 
  Country: None (occurrence: None)
  Receive Date: 20110906
  Receipt Date: 20110527
  Transmission Date: 20111222
  Serious: No
  Sender: FDA-Public Use
  Company Number: US-BAYER-2011-046682

PATIENT
  Sex: Female

DRUGS (1)
  1. MIRENA [Suspect]
     Indication: CONTRACEPTION
     Dosage: 20 MCG/24HR, CONT
     Route: 015
     Dates: start: 20090101

REACTIONS (5)
  - DIZZINESS [None]
  - BLOOD PRESSURE INCREASED [None]
  - FATIGUE [None]
  - VAGINAL HAEMORRHAGE [None]
  - MENSTRUATION DELAYED [None]
